FAERS Safety Report 11459556 (Version 1)
Quarter: 2015Q3

REPORT INFORMATION
  Report Type: Spontaneous
  Country: US (occurrence: US)
  Receive Date: 20150904
  Receipt Date: 20150904
  Transmission Date: 20151125
  Serious: No
  Sender: FDA-Public Use
  Company Number: US-TARO-2015TAR00308

PATIENT
  Age: 66 Year
  Sex: Male
  Weight: 112.47 kg

DRUGS (14)
  1. WARFARIN SODIUM TABLETS USP 5MG [Suspect]
     Active Substance: WARFARIN SODIUM
     Dosage: 10 MG, 1X/DAY
     Route: 048
     Dates: start: 201503, end: 20150406
  2. SYNTHROID [Concomitant]
     Active Substance: LEVOTHYROXINE SODIUM
     Dosage: .3 DOSAGE UNITS, 1X/DAY
     Dates: start: 2005
  3. ULORIC [Concomitant]
     Active Substance: FEBUXOSTAT
     Dosage: 40 MG, 1X/DAY
     Dates: start: 2010
  4. CENTRUM SILVER [Concomitant]
     Active Substance: VITAMINS
  5. WARFARIN SODIUM TABLETS USP 5MG [Suspect]
     Active Substance: WARFARIN SODIUM
     Dosage: 12.5 MG, 1X/DAY
     Route: 048
     Dates: start: 20150407, end: 20150416
  6. WARFARIN SODIUM TABLETS USP 5MG [Suspect]
     Active Substance: WARFARIN SODIUM
     Dosage: 10 MG, EVERY 48 HOURS
     Route: 048
     Dates: start: 20150422
  7. WARFARIN SODIUM TABLETS USP 5MG [Suspect]
     Active Substance: WARFARIN SODIUM
     Dosage: 10 MG, 1X/DAY
     Dates: start: 20150629, end: 20150630
  8. WARFARIN SODIUM TABLETS USP 5MG [Suspect]
     Active Substance: WARFARIN SODIUM
     Dosage: 7.5 MG, EVERY 48 HOURS
     Dates: start: 20150701
  9. WARFARIN SODIUM TABLETS USP 5MG [Suspect]
     Active Substance: WARFARIN SODIUM
     Dosage: 10 MG, EVERY 48 HOURS
     Dates: start: 20150702
  10. WARFARIN SODIUM TABLETS USP 5MG [Suspect]
     Active Substance: WARFARIN SODIUM
     Indication: ATRIAL FIBRILLATION
     Dosage: 5 MG, 1X/DAY
     Route: 048
     Dates: start: 201310, end: 201503
  11. WARFARIN SODIUM TABLETS USP 5MG [Suspect]
     Active Substance: WARFARIN SODIUM
     Dosage: 5 MG, EVERY 48 HOURS
     Route: 048
     Dates: start: 20150423
  12. WARFARIN SODIUM TABLETS USP 5MG [Suspect]
     Active Substance: WARFARIN SODIUM
     Dosage: 7.5 MG, 1X/DAY
     Route: 048
     Dates: start: 201503, end: 201503
  13. RENVELA [Concomitant]
     Active Substance: SEVELAMER CARBONATE
     Dosage: 3 DOSAGE UNITS, UNK
  14. LOPERAMIDE [Concomitant]
     Active Substance: LOPERAMIDE
     Dosage: 4 MG, 3X/DAY

REACTIONS (3)
  - International normalised ratio increased [Recovered/Resolved]
  - International normalised ratio decreased [Not Recovered/Not Resolved]
  - Weight decreased [Unknown]

NARRATIVE: CASE EVENT DATE: 201503
